FAERS Safety Report 6047974-3 (Version None)
Quarter: 2009Q1

REPORT INFORMATION
  Report Type: 
  Country: None (occurrence: None)
  Receive Date: 20090123
  Receipt Date: 20090114
  Transmission Date: 20090719
  Serious: Yes (Hospitalization, Disabling)
  Sender: FDA-Public Use
  Company Number: PHHY2009FR01717

PATIENT
  Sex: Male

DRUGS (11)
  1. ZOMETA [Suspect]
     Indication: METASTASES TO BONE
     Dosage: 4 MG, QMO
     Route: 042
     Dates: start: 20050522, end: 20061101
  2. LYTOS [Suspect]
     Dosage: 1040 MG/DAY
     Dates: start: 20061101, end: 20070424
  3. THALIDOMIDE [Concomitant]
     Dosage: UNK
     Dates: start: 20050315
  4. THALIDOMIDE [Concomitant]
     Dosage: UNK
     Dates: start: 20060401
  5. THALIDOMIDE [Concomitant]
     Dosage: UNK
     Dates: start: 20061001
  6. CARBOPLATIN [Concomitant]
     Dosage: UNK
     Dates: start: 20050326
  7. CARBOPLATIN [Concomitant]
     Dosage: UNK
     Dates: start: 20050502
  8. CARBOPLATIN [Concomitant]
     Dosage: UNK
     Dates: start: 20050606
  9. CARBOPLATIN [Concomitant]
     Dosage: UNK
     Dates: start: 20050706
  10. CARBOPLATIN [Concomitant]
     Dosage: UNK
     Dates: start: 20050808
  11. CARBOPLATIN [Concomitant]
     Dosage: UNK
     Dates: start: 20050908

REACTIONS (7)
  - BONE LESION [None]
  - IMPAIRED HEALING [None]
  - MASTICATION DISORDER [None]
  - ORAL PAIN [None]
  - OSTEONECROSIS [None]
  - SINUSITIS [None]
  - TOOTH EXTRACTION [None]
